FAERS Safety Report 14101931 (Version 3)
Quarter: 2019Q1

REPORT INFORMATION
  Report Type: Report from Study
  Country: US (occurrence: US)
  Receive Date: 20171018
  Receipt Date: 20190116
  Transmission Date: 20190417
  Serious: Yes (Other)
  Sender: FDA-Public Use
  Company Number: US-TAKEDA-2016MPI009034

PATIENT
  Sex: Female

DRUGS (2)
  1. REVLIMID [Suspect]
     Active Substance: LENALIDOMIDE
     Indication: PLASMA CELL MYELOMA
     Dosage: 10 MG, UNK
     Route: 048
     Dates: start: 201010
  2. BORTEZOMIB. [Suspect]
     Active Substance: BORTEZOMIB
     Indication: PLASMA CELL MYELOMA
     Dosage: UNK
     Route: 065
     Dates: start: 201004, end: 201010

REACTIONS (9)
  - Benign neoplasm of thyroid gland [Recovering/Resolving]
  - Scar [Recovering/Resolving]
  - Fatigue [Unknown]
  - Pain [Unknown]
  - Ovarian cancer [Unknown]
  - Feeling abnormal [Unknown]
  - Influenza [Unknown]
  - Anxiety [Unknown]
  - Depression [Unknown]
